FAERS Safety Report 18533408 (Version 1)
Quarter: 2020Q4

REPORT INFORMATION
  Report Type: Spontaneous
  Country: US (occurrence: US)
  Receive Date: 20201120
  Receipt Date: 20201120
  Transmission Date: 20210114
  Serious: Yes (Other)
  Sender: FDA-Public Use
  Company Number: None

PATIENT
  Age: 62 Year
  Sex: Female
  Weight: 65.25 kg

DRUGS (7)
  1. VIT D 5000 IU [Concomitant]
  2. ZIRTEC [Concomitant]
     Active Substance: CETIRIZINE HYDROCHLORIDE
  3. DOXYCYCLINE 100MG [Suspect]
     Active Substance: DOXYCYCLINE
     Indication: BRONCHITIS
     Dosage: ?          QUANTITY:1 TABLET(S);?
     Route: 048
     Dates: start: 20201109, end: 20201113
  4. DUO NEULIZER [Concomitant]
  5. PREDNISONE 40MG [Concomitant]
     Active Substance: PREDNISONE
  6. PULMACORT NEBULIZER [Concomitant]
  7. NP THYROID 60 G [Concomitant]

REACTIONS (4)
  - Dizziness [None]
  - Headache [None]
  - Vision blurred [None]
  - Confusional state [None]

NARRATIVE: CASE EVENT DATE: 20201111
